FAERS Safety Report 9415724 (Version 1)
Quarter: 2013Q3

REPORT INFORMATION
  Report Type: Spontaneous
  Country: GB (occurrence: GB)
  Receive Date: 20130723
  Receipt Date: 20130723
  Transmission Date: 20140515
  Serious: Yes (Other)
  Sender: FDA-Public Use
  Company Number: GB-B.I. PHARMACEUTICALS,INC./RIDGEFIELD-2013-UK-01433UK

PATIENT
  Age: 79 Year
  Sex: Male
  Weight: 122 kg

DRUGS (7)
  1. TRAJENTA [Suspect]
     Dates: start: 20130314
  2. CO-CODAMOL [Concomitant]
     Dates: start: 20130522, end: 20130525
  3. FLUCLOXACILLIN [Concomitant]
     Dates: start: 20130522, end: 20130529
  4. GLICLAZIDE [Concomitant]
     Dosage: 240 MG
     Dates: start: 20130311
  5. LEVOTHYROXINE [Concomitant]
     Dates: start: 20130311
  6. LOSARTAN [Concomitant]
     Dates: start: 20130314, end: 20130411
  7. PHENOXYMETHYLPENICILLIN [Concomitant]
     Dates: start: 20130522, end: 20130529

REACTIONS (2)
  - Amylase increased [Unknown]
  - Abdominal pain upper [Unknown]
